FAERS Safety Report 25199567 (Version 1)
Quarter: 2025Q2

REPORT INFORMATION
  Report Type: Spontaneous
  Country: US (occurrence: US)
  Receive Date: 20250415
  Receipt Date: 20250415
  Transmission Date: 20250716
  Serious: Yes (Other)
  Sender: ANI
  Company Number: US-ANIPHARMA-2025-US-016964

PATIENT
  Age: 63 Year
  Sex: Female

DRUGS (3)
  1. CORTICOTROPIN [Suspect]
     Active Substance: CORTICOTROPIN
     Indication: Sarcoidosis
     Route: 058
     Dates: start: 20250107, end: 20250403
  2. ATORVASTATIN [Concomitant]
     Active Substance: ATORVASTATIN
  3. AMLODIPINE [Concomitant]
     Active Substance: AMLODIPINE BESYLATE

REACTIONS (5)
  - Blood glucose increased [Unknown]
  - Malaise [Recovering/Resolving]
  - Contraindicated product administered [Recovered/Resolved]
  - Glycosylated haemoglobin increased [Unknown]
  - Dehydration [Unknown]

NARRATIVE: CASE EVENT DATE: 20250107
